FAERS Safety Report 22222798 (Version 1)
Quarter: 2023Q2

REPORT INFORMATION
  Report Type: Spontaneous
  Country: DK (occurrence: DK)
  Receive Date: 20230418
  Receipt Date: 20230418
  Transmission Date: 20230721
  Serious: Yes (Other)
  Sender: FDA-Public Use
  Company Number: None

PATIENT
  Age: 31 Year
  Sex: Female
  Weight: 83 kg

DRUGS (9)
  1. QUETIAPINE FUMARATE [Suspect]
     Active Substance: QUETIAPINE FUMARATE
     Indication: Bipolar disorder
     Dosage: STRENGTH: 200 MG
     Dates: start: 20211118
  2. OLANZAPINE [Suspect]
     Active Substance: OLANZAPINE
     Indication: Bipolar disorder
  3. OLANZAPINE [Suspect]
     Active Substance: OLANZAPINE
     Indication: Bipolar disorder
     Dosage: STRENGTH: 10 MG
     Dates: start: 20191110, end: 20210122
  4. OLANZAPINE [Suspect]
     Active Substance: OLANZAPINE
     Indication: Bipolar disorder
     Dosage: STRENGTH: 20 MG
     Dates: start: 20201201, end: 20210201
  5. QUETIAPINE [Suspect]
     Active Substance: QUETIAPINE
     Indication: Bipolar disorder
     Dosage: DOSAGE: MAX. 6 TIMES DAILY, STRENGTH: 25 MG
     Dates: start: 20210210
  6. QUETIAPINE [Suspect]
     Active Substance: QUETIAPINE
     Indication: Bipolar disorder
     Dosage: DOSAGE: MAX. 4 TIMES DAILY, STRENGTH: 25 MG
     Dates: start: 20170501, end: 20170701
  7. QUETIAPINE [Suspect]
     Active Substance: QUETIAPINE
     Indication: Bipolar disorder
     Dosage: STRENGTH: 300 MG
     Dates: start: 20130901
  8. QUETIAPINE [Suspect]
     Active Substance: QUETIAPINE
     Indication: Bipolar disorder
     Dosage: STRENGTH: 300 MG
     Dates: start: 20130101
  9. QUETIAPINE [Suspect]
     Active Substance: QUETIAPINE
     Indication: Bipolar disorder
     Dosage: STRENGTH: 50 MG
     Dates: start: 20211118

REACTIONS (13)
  - Dyskinesia [Not Recovered/Not Resolved]
  - Abdominal pain [Recovering/Resolving]
  - Pharyngitis [Recovered/Resolved]
  - Constipation [Recovering/Resolving]
  - Migraine [Not Recovered/Not Resolved]
  - Dizziness [Not Recovered/Not Resolved]
  - Musculoskeletal stiffness [Not Recovered/Not Resolved]
  - Tardive dyskinesia [Not Recovered/Not Resolved]
  - Nausea [Recovering/Resolving]
  - Somnolence [Not Recovered/Not Resolved]
  - Oropharyngeal pain [Recovered/Resolved]
  - Headache [Not Recovered/Not Resolved]
  - Muscle spasms [Not Recovered/Not Resolved]

NARRATIVE: CASE EVENT DATE: 20200101
